FAERS Safety Report 8120717-5 (Version None)
Quarter: 2012Q1

REPORT INFORMATION
  Report Type: 
  Country: None (occurrence: None)
  Receive Date: 20120207
  Receipt Date: 20120202
  Transmission Date: 20120608
  Serious: Yes (Hospitalization, Disabling, Other)
  Sender: FDA-Public Use
  Company Number: IE-ROXANE LABORATORIES, INC.-2012-RO-00589RO

PATIENT
  Age: 38 Year
  Sex: Female

DRUGS (3)
  1. LITHIUM CARBONATE [Suspect]
     Indication: BIPOLAR DISORDER
     Dosage: 400 MG
  2. OLANZAPINE [Suspect]
     Dosage: 10 MG
  3. CITALOPRAM HYDROBROMIDE [Suspect]
     Dosage: 20 MG

REACTIONS (5)
  - CLOSTRIDIUM DIFFICILE COLITIS [None]
  - HYPOKALAEMIA [None]
  - PERIPHERAL SENSORIMOTOR NEUROPATHY [None]
  - NEUROTOXICITY [None]
  - HYPONATRAEMIA [None]
